FAERS Safety Report 4433377-1 (Version None)
Quarter: 2004Q3

REPORT INFORMATION
  Report Type: 
  Country: None (occurrence: None)
  Receive Date: 20040824
  Receipt Date: 20040812
  Transmission Date: 20050211
  Serious: Yes (Death, Hospitalization, Other)
  Sender: FDA-Public Use
  Company Number: JP-JNJFOC-20040402644

PATIENT
  Age: 62 Year
  Sex: Female
  Weight: 38 kg

DRUGS (17)
  1. REMICADE [Suspect]
     Indication: RHEUMATOID ARTHRITIS
     Dosage: SEE IMAGE
     Route: 041
     Dates: start: 20040315, end: 20040315
  2. REMICADE [Suspect]
     Indication: RHEUMATOID ARTHRITIS
     Dosage: SEE IMAGE
     Route: 041
     Dates: start: 20040329, end: 20040329
  3. PREDNISOLONE [Suspect]
     Indication: RHEUMATOID ARTHRITIS
     Dosage: SEE IMAGE
     Dates: start: 20040114, end: 20040326
  4. PREDNISOLONE [Suspect]
     Indication: RHEUMATOID ARTHRITIS
     Dosage: SEE IMAGE
     Dates: start: 20040323, end: 20040401
  5. PREDNISOLONE [Suspect]
     Indication: RHEUMATOID ARTHRITIS
     Dosage: SEE IMAGE
     Dates: start: 20040327, end: 20040402
  6. PREDNISOLONE [Suspect]
     Indication: RHEUMATOID ARTHRITIS
     Dosage: SEE IMAGE
     Dates: start: 20040402, end: 20040524
  7. PREDNISOLONE [Suspect]
     Indication: RHEUMATOID ARTHRITIS
     Dosage: SEE IMAGE
     Dates: start: 20040525, end: 20040604
  8. METHOTREXATE [Concomitant]
  9. RHEUMATREX [Concomitant]
  10. LORCAM (ALL OTHER THERAPEUTIC PRODUCTS) [Concomitant]
  11. FOLIC ACID [Concomitant]
  12. PLATIVIT (ALL OTHER THERAPEUTIC PRODUCTS) [Concomitant]
  13. SELBEX (TEPRENONE) [Concomitant]
  14. FERROMIA (FERROUS CITRATE) [Concomitant]
  15. PRONON (PROPAFENONE HYDROCHLORIDE) [Concomitant]
  16. LASIX [Concomitant]
  17. SOLERUMON SR (ALL OTHER THERAPEUTIC PRODUCTS) [Concomitant]

REACTIONS (18)
  - C-REACTIVE PROTEIN INCREASED [None]
  - CELLULITIS [None]
  - DEAFNESS NEUROSENSORY [None]
  - DECREASED APPETITE [None]
  - DRUG INTERACTION [None]
  - DYSPHAGIA [None]
  - HISTIOCYTOSIS HAEMATOPHAGIC [None]
  - LEUKOPENIA [None]
  - MARKEDLY REDUCED DIETARY INTAKE [None]
  - PRODUCTIVE COUGH [None]
  - PYREXIA [None]
  - RED BLOOD CELL COUNT DECREASED [None]
  - REFUSAL OF TREATMENT BY RELATIVE [None]
  - SHOCK [None]
  - SPEECH DISORDER [None]
  - STAPHYLOCOCCAL INFECTION [None]
  - THROMBOCYTOPENIA [None]
  - VOMITING [None]
